FAERS Safety Report 9809450 (Version 1)
Quarter: 2014Q1

REPORT INFORMATION
  Report Type: Spontaneous
  Country: BR (occurrence: BR)
  Receive Date: 20140110
  Receipt Date: 20140110
  Transmission Date: 20141002
  Serious: Yes (Hospitalization)
  Sender: FDA-Public Use
  Company Number: BR-ASTRAZENECA-2014SE00918

PATIENT
  Age: 69 Year
  Sex: Female
  Weight: 74 kg

DRUGS (5)
  1. ATENOLOL [Suspect]
     Indication: ARRHYTHMIA
     Route: 048
     Dates: start: 2004, end: 201311
  2. ATENOLOL [Suspect]
     Indication: HYPERTENSION
     Route: 048
     Dates: start: 2004, end: 201311
  3. CRESTOR [Suspect]
     Indication: BLOOD CHOLESTEROL ABNORMAL
     Route: 048
     Dates: start: 2012
  4. FESTONE [Suspect]
     Indication: BREAST CANCER FEMALE
     Dosage: DAILY
     Route: 048
     Dates: start: 201301
  5. BENICAR HCT [Suspect]
     Indication: HYPERTENSION
     Dosage: DAILY
     Route: 048
     Dates: start: 2004

REACTIONS (3)
  - Breast cancer [Unknown]
  - Tachycardia [Recovered/Resolved]
  - Blood cholesterol abnormal [Recovered/Resolved]
